FAERS Safety Report 9752532 (Version 3)
Quarter: 2014Q1

REPORT INFORMATION
  Report Type: Spontaneous
  Country: CO (occurrence: CO)
  Receive Date: 20131213
  Receipt Date: 20140212
  Transmission Date: 20141002
  Serious: Yes (Death)
  Sender: FDA-Public Use
  Company Number: CO-NOVOPROD-394711

PATIENT
  Age: 76 Year
  Sex: Male
  Weight: 61 kg

DRUGS (5)
  1. NOVOSEVEN RT [Suspect]
     Indication: COAGULOPATHY
     Dosage: 4.9 MG, EVERY 4TH HOUR
     Route: 065
     Dates: start: 20131129, end: 20131130
  2. NOVOSEVEN RT [Suspect]
     Dosage: 4.9 MG, EVERY 4TH HOUR
     Route: 065
     Dates: start: 20131129, end: 20131130
  3. PLASMA [Concomitant]
     Indication: HAEMATURIA
     Dosage: UNK, RECEIVED ALMOST DAILY
     Route: 065
  4. VITAMIN K                          /00032401/ [Concomitant]
     Indication: HAEMATURIA
     Dosage: UNK, RECEIVED ALMOST DAILY
     Route: 065
  5. RED BLOOD CELLS [Concomitant]
     Indication: HAEMATURIA
     Dosage: UNK
     Route: 065

REACTIONS (1)
  - Haematuria [Fatal]
